FAERS Safety Report 8554164-9 (Version None)
Quarter: 2012Q3

REPORT INFORMATION
  Report Type: 
  Country: None (occurrence: None)
  Receive Date: 20120731
  Receipt Date: 20120711
  Transmission Date: 20120928
  Serious: No
  Sender: FDA-Public Use
  Company Number: US-ASTRAZENECA-2012SE47937

PATIENT
  Age: 74 Year
  Sex: Female
  Weight: 67.1 kg

DRUGS (3)
  1. VENTOLIN [Concomitant]
  2. SYMBICORT [Suspect]
     Dosage: 2 PUFFS TWO TIMES A DAY
     Route: 055
  3. CARDIOVEL [Concomitant]

REACTIONS (1)
  - VISUAL IMPAIRMENT [None]
